FAERS Safety Report 10251724 (Version 1)
Quarter: 2014Q2

REPORT INFORMATION
  Report Type: Spontaneous
  Country: US (occurrence: US)
  Receive Date: 20140623
  Receipt Date: 20140623
  Transmission Date: 20141212
  Serious: No
  Sender: FDA-Public Use
  Company Number: US-BIOGENIDEC-2014BI057114

PATIENT
  Age: 41 Year
  Sex: Female

DRUGS (1)
  1. TECFIDERA [Suspect]
     Indication: PRODUCT USED FOR UNKNOWN INDICATION
     Dates: start: 201404, end: 201404

REACTIONS (5)
  - Multiple allergies [Not Recovered/Not Resolved]
  - Infection [Not Recovered/Not Resolved]
  - Flushing [Unknown]
  - Rash [Unknown]
  - Pruritus generalised [Unknown]
